FAERS Safety Report 7077633-X (Version None)
Quarter: 2010Q4

REPORT INFORMATION
  Report Type: 
  Country: None (occurrence: None)
  Receive Date: 20101101
  Receipt Date: 20101019
  Transmission Date: 20110411
  Serious: Yes (Other)
  Sender: FDA-Public Use
  Company Number: GB-BAYER-201043402GPV

PATIENT
  Sex: Male

DRUGS (1)
  1. PRIMOVIST [Suspect]
     Dates: start: 20100101, end: 20100101

REACTIONS (1)
  - HYPOGLYCAEMIA [None]
